FAERS Safety Report 6395040-X (Version None)
Quarter: 2009Q4

REPORT INFORMATION
  Report Type: 
  Country: None (occurrence: None)
  Receive Date: 20091009
  Receipt Date: 20091001
  Transmission Date: 20100525
  Serious: Yes (Other)
  Sender: FDA-Public Use
  Company Number: US-PFIZER INC-2009277621

PATIENT
  Sex: Female
  Weight: 41.73 kg

DRUGS (3)
  1. CELEBREX [Suspect]
     Indication: PAIN
     Route: 048
     Dates: start: 20090920
  2. WELLBUTRIN [Concomitant]
  3. BUSPAR [Concomitant]

REACTIONS (1)
  - VISUAL ACUITY REDUCED [None]
